FAERS Safety Report 22116863 (Version 3)
Quarter: 2023Q2

REPORT INFORMATION
  Report Type: Other
  Country: IN (occurrence: None)
  Receive Date: 20230320
  Receipt Date: 20230616
  Transmission Date: 20230722
  Serious: Yes (Hospitalization)
  Sender: FDA-Public Use
  Company Number: IN-ROCHE-3309273

PATIENT
  Age: 64 Year
  Sex: Male

DRUGS (1)
  1. TECENTRIQ [Suspect]
     Active Substance: ATEZOLIZUMAB
     Indication: Small cell lung cancer
     Route: 041
     Dates: start: 20230124

REACTIONS (2)
  - Disease progression [Unknown]
  - Seizure [Unknown]
